FAERS Safety Report 19814487 (Version 2)
Quarter: 2021Q4

REPORT INFORMATION
  Report Type: Report from Study
  Country: NL (occurrence: NL)
  Receive Date: 20210910
  Receipt Date: 20211103
  Transmission Date: 20220303
  Serious: Yes (Other)
  Sender: FDA-Public Use
  Company Number: NL-SA-2019SA178991

PATIENT
  Age: 56 Year

DRUGS (2)
  1. DUPILUMAB [Suspect]
     Active Substance: DUPILUMAB
     Indication: Dermatitis atopic
     Dosage: 300 MG, QOW
     Route: 065
     Dates: start: 20180823
  2. ITRACONAZOLE [Concomitant]
     Active Substance: ITRACONAZOLE
     Dosage: 100 MG, QD

REACTIONS (4)
  - Ocular surface disease [Not Recovered/Not Resolved]
  - Erythema [Not Recovered/Not Resolved]
  - Conjunctivitis allergic [Unknown]
  - Eye pruritus [Unknown]

NARRATIVE: CASE EVENT DATE: 20181008
